FAERS Safety Report 11182837 (Version 7)
Quarter: 2016Q3

REPORT INFORMATION
  Report Type: Report from Study
  Country: BR (occurrence: BR)
  Receive Date: 20150611
  Receipt Date: 20160823
  Transmission Date: 20161109
  Serious: Yes (Hospitalization, Other)
  Sender: FDA-Public Use
  Company Number: PHHY2015BR066762

PATIENT
  Age: 63 Year
  Sex: Male
  Weight: 80 kg

DRUGS (2)
  1. ACLASTA [Suspect]
     Active Substance: ZOLEDRONIC ACID
     Indication: OSTEOPOROSIS
     Dosage: 1 DF (5MG/100 ML), Q12MO
     Route: 042
     Dates: start: 201504
  2. ACLASTA [Suspect]
     Active Substance: ZOLEDRONIC ACID
     Dosage: 1 DF (5MG/100ML), Q12MO
     Route: 042
     Dates: start: 20150528, end: 20150528

REACTIONS (19)
  - Rib fracture [Recovering/Resolving]
  - Lung infection [Unknown]
  - Arthralgia [Not Recovered/Not Resolved]
  - Pain [Recovering/Resolving]
  - Dizziness [Recovered/Resolved]
  - Bone pain [Not Recovered/Not Resolved]
  - Scapula fracture [Unknown]
  - Abasia [Recovering/Resolving]
  - Pain in extremity [Recovered/Resolved]
  - Crepitations [Not Recovered/Not Resolved]
  - Gait disturbance [Not Recovered/Not Resolved]
  - Spinal fracture [Unknown]
  - Feeling abnormal [Recovering/Resolving]
  - Muscular weakness [Recovering/Resolving]
  - Osteonecrosis [Not Recovered/Not Resolved]
  - Concomitant disease aggravated [Not Recovered/Not Resolved]
  - Fracture [Recovering/Resolving]
  - Back pain [Recovered/Resolved]
  - Myalgia [Unknown]

NARRATIVE: CASE EVENT DATE: 201512
